FAERS Safety Report 17207708 (Version 1)
Quarter: 2019Q4

REPORT INFORMATION
  Report Type: Spontaneous
  Country: KW (occurrence: KW)
  Receive Date: 20191227
  Receipt Date: 20191227
  Transmission Date: 20200122
  Serious: Yes (Other)
  Sender: FDA-Public Use
  Company Number: KW-PFIZER INC-2019547445

PATIENT
  Age: 32 Year
  Sex: Male

DRUGS (6)
  1. PHENOBARBITAL. [Suspect]
     Active Substance: PHENOBARBITAL
     Indication: EPILEPSY
     Dosage: 90 MG, DAILY
  2. PHENOBARBITAL. [Suspect]
     Active Substance: PHENOBARBITAL
     Dosage: 90 MG, DAILY (RETURN TO THE ORIGINAL DOSES)
  3. PHENYTOIN SODIUM. [Suspect]
     Active Substance: PHENYTOIN SODIUM
     Indication: EPILEPSY
     Dosage: 600 MG, DAILY
  4. PHENOBARBITAL. [Suspect]
     Active Substance: PHENOBARBITAL
     Indication: GENERALISED TONIC-CLONIC SEIZURE
     Dosage: UNK, DAILY (ATTEMPT TO TAPER THE AEDS 7 YEARS AGO)
  5. PHENYTOIN SODIUM. [Suspect]
     Active Substance: PHENYTOIN SODIUM
     Indication: GENERALISED TONIC-CLONIC SEIZURE
     Dosage: UNK, DAILY (ATTEMPT TO TAPER THE AEDS 7 YEARS AGO)
  6. PHENYTOIN SODIUM. [Suspect]
     Active Substance: PHENYTOIN SODIUM
     Dosage: 600 MG, DAILY (RETURN TO THE ORIGINAL DOSES)

REACTIONS (7)
  - Drug tolerance [Unknown]
  - Blood 25-hydroxycholecalciferol decreased [Unknown]
  - Drug ineffective [Unknown]
  - Hypocalcaemia [Recovered/Resolved]
  - Treatment noncompliance [Unknown]
  - Hyperparathyroidism [Unknown]
  - Neurological decompensation [Unknown]
